FAERS Safety Report 9885798 (Version 1)
Quarter: 2014Q1

REPORT INFORMATION
  Report Type: Other
  Country: IT (occurrence: IT)
  Receive Date: 20140210
  Receipt Date: 20140210
  Transmission Date: 20141002
  Serious: Yes (Hospitalization)
  Sender: FDA-Public Use
  Company Number: IT-BRISTOL-MYERS SQUIBB COMPANY-20134839

PATIENT
  Age: 75 Year
  Sex: Male

DRUGS (15)
  1. METFORMIN HCL [Suspect]
  2. GLIBENCLAMIDE [Suspect]
  3. CLOPIDOGREL BISULFATE [Suspect]
  4. IVABRADINE [Suspect]
  5. ASPIRIN [Suspect]
  6. RAMIPRIL [Suspect]
  7. CARVEDILOL [Suspect]
  8. ISOSORBIDE [Suspect]
  9. LOSARTAN [Suspect]
  10. NITROGLYCERIN [Suspect]
     Route: 062
  11. AMLODIPINE [Suspect]
  12. FUROSEMIDE [Suspect]
  13. RANOLAZINE HCL [Suspect]
  14. URSODEOXYCHOLIC ACID [Suspect]
  15. DOXAZOSIN [Suspect]

REACTIONS (2)
  - Photopsia [Recovered/Resolved]
  - Hallucination, visual [Recovered/Resolved]
